FAERS Safety Report 9968384 (Version 1)
Quarter: 2014Q1

REPORT INFORMATION
  Report Type: Report from Study
  Country: US (occurrence: US)
  Receive Date: 20140306
  Receipt Date: 20140306
  Transmission Date: 20141002
  Serious: No
  Sender: FDA-Public Use
  Company Number: US-ABBVIE-13P-163-1140427-00

PATIENT
  Age: 69 Year
  Sex: Female
  Weight: 63.11 kg

DRUGS (10)
  1. HUMIRA [Suspect]
     Indication: RHEUMATOID ARTHRITIS
     Dates: start: 201305
  2. SYNTHROID [Concomitant]
     Indication: THYROIDECTOMY
  3. NORVASC [Concomitant]
     Indication: HYPERTENSION
  4. NOVOLOG INSULIN [Concomitant]
     Indication: DIABETES MELLITUS
  5. LYRICA [Concomitant]
     Indication: FIBROMYALGIA
  6. UNNAMED MEDICATION [Concomitant]
     Indication: HYPERTENSION
  7. FISH OIL [Concomitant]
     Indication: VITAMIN SUPPLEMENTATION
  8. RED YEAST RICE [Concomitant]
     Indication: VITAMIN SUPPLEMENTATION
  9. MULTIVITAMIN FOR WOMEN [Concomitant]
     Indication: VITAMIN SUPPLEMENTATION
  10. FOLIC ACID [Concomitant]
     Indication: VITAMIN SUPPLEMENTATION

REACTIONS (2)
  - Pain [Not Recovered/Not Resolved]
  - Drug ineffective [Not Recovered/Not Resolved]
